FAERS Safety Report 6204509-X (Version None)
Quarter: 2009Q2

REPORT INFORMATION
  Report Type: 
  Country: None (occurrence: None)
  Receive Date: 20090527
  Receipt Date: 20090514
  Transmission Date: 20091009
  Serious: Yes (Hospitalization, Other)
  Sender: FDA-Public Use
  Company Number: FR-PFIZER INC-2009213141

PATIENT
  Age: 37 Year

DRUGS (2)
  1. CYTOTEC [Suspect]
     Indication: ABORTION INDUCED
     Dosage: 2 DF, 1X/DAY
     Route: 048
     Dates: start: 20090405
  2. CYTOTEC [Suspect]
     Indication: ENDOCERVICAL CURETTAGE

REACTIONS (4)
  - ABORTION [None]
  - CERVIX DISORDER [None]
  - NECROSIS [None]
  - OFF LABEL USE [None]
